FAERS Safety Report 17016365 (Version 1)
Quarter: 2019Q4

REPORT INFORMATION
  Report Type: Spontaneous
  Country: US (occurrence: US)
  Receive Date: 20191004
  Receipt Date: 20191004
  Transmission Date: 20200122
  Serious: No
  Sender: FDA-Public Use
  Company Number: None

PATIENT
  Age: 58 Year
  Sex: Female

DRUGS (1)
  1. COPAXONE [Suspect]
     Active Substance: GLATIRAMER ACETATE
     Indication: MULTIPLE SCLEROSIS
     Route: 058
     Dates: start: 2004

REACTIONS (8)
  - Nausea [None]
  - Gait inability [None]
  - Immediate post-injection reaction [None]
  - Pain in extremity [None]
  - Myalgia [None]
  - Flushing [None]
  - Erythema [None]
  - Chest pain [None]

NARRATIVE: CASE EVENT DATE: 20191004
